FAERS Safety Report 7096415-6 (Version None)
Quarter: 2010Q4

REPORT INFORMATION
  Report Type: 
  Country: None (occurrence: None)
  Receive Date: 20101111
  Receipt Date: 20101102
  Transmission Date: 20110411
  Serious: Yes (Disabling)
  Sender: FDA-Public Use
  Company Number: CO-ASTRAZENECA-2010SE52027

PATIENT
  Age: 42 Year
  Sex: Female

DRUGS (2)
  1. CRESTOR [Suspect]
     Indication: HYPERLIPIDAEMIA
     Route: 048
  2. VITAMIN E [Concomitant]

REACTIONS (1)
  - GENERALISED OEDEMA [None]
